FAERS Safety Report 6831242-3 (Version None)
Quarter: 2010Q3

REPORT INFORMATION
  Report Type: 
  Country: None (occurrence: None)
  Receive Date: 20100712
  Receipt Date: 20100701
  Transmission Date: 20110219
  Serious: Yes (Hospitalization)
  Sender: FDA-Public Use
  Company Number: DE-BRISTOL-MYERS SQUIBB COMPANY-15184138

PATIENT
  Age: 61 Year
  Sex: Female
  Weight: 40 kg

DRUGS (6)
  1. CETUXIMAB [Suspect]
     Indication: HEAD AND NECK CANCER
     Dosage: LOADING DOSE= DAY 1 OF CYCLE 1 400MG/M2 THEN 250MG/M2 WEEKLY.LAST DOSE ON 23JUN2010
     Route: 042
     Dates: start: 20100526
  2. CISPLATIN [Suspect]
     Indication: HEAD AND NECK CANCER
     Dosage: DOSE= DAY 1 EVERY 21 DAYS.LAST DOSE = 16-JUN-2010
     Route: 042
     Dates: start: 20100526
  3. PEMETREXED DISODIUM [Suspect]
     Indication: HEAD AND NECK CANCER
     Dosage: DOSE=DAY 1 EVERY 21 DAYS.LAST DOSE 16-JUN-2010.
     Route: 042
     Dates: start: 20100526
  4. FOLIC ACID [Concomitant]
     Indication: PROPHYLAXIS
  5. VITAMIN B-12 [Concomitant]
     Indication: PROPHYLAXIS
  6. DEXAMETHASONE ACETATE [Concomitant]
     Indication: PROPHYLAXIS

REACTIONS (2)
  - FATIGUE [None]
  - HYPOTENSION [None]
